FAERS Safety Report 5588059-X (Version None)
Quarter: 2008Q1

REPORT INFORMATION
  Report Type: 
  Country: None (occurrence: None)
  Receive Date: 20080111
  Receipt Date: 20071228
  Transmission Date: 20080703
  Serious: Yes (Other)
  Sender: FDA-Public Use
  Company Number: CN-PFIZER INC-2007108974

PATIENT
  Age: 19 Year
  Sex: Male

DRUGS (3)
  1. ZOLOFT [Suspect]
     Indication: COMPULSIONS
     Route: 048
  2. BENZODIAZEPINE DERIVATIVES [Concomitant]
     Indication: COMPULSIONS
     Route: 048
  3. SULPIRIDE [Concomitant]
     Indication: COMPULSIONS
     Route: 048

REACTIONS (1)
  - BLOOD CREATINE PHOSPHOKINASE INCREASED [None]
